FAERS Safety Report 5074010-8 (Version None)
Quarter: 2006Q3

REPORT INFORMATION
  Report Type: 
  Country: None (occurrence: None)
  Receive Date: 20060808
  Receipt Date: 20060410
  Transmission Date: 20061208
  Serious: No
  Sender: FDA-Public Use
  Company Number: US-AMGEN-KDL176112

PATIENT
  Sex: Male
  Weight: 86.3 kg

DRUGS (4)
  1. PROCRIT [Suspect]
     Indication: ANAEMIA
     Dates: start: 20060315
  2. GLUCOVANCE [Concomitant]
  3. TORSEMIDE [Concomitant]
  4. SPIRIVA [Concomitant]
     Route: 055

REACTIONS (1)
  - BLOOD GLUCOSE INCREASED [None]
